FAERS Safety Report 4407954-8 (Version None)
Quarter: 2004Q3

REPORT INFORMATION
  Report Type: 
  Country: None (occurrence: None)
  Receive Date: 20040716
  Receipt Date: 20040705
  Transmission Date: 20050211
  Serious: Yes (Hospitalization)
  Sender: FDA-Public Use
  Company Number: 2004222544FR

PATIENT
  Age: 33 Year
  Sex: Female

DRUGS (2)
  1. SOLU-MEDROL [Suspect]
     Indication: ANKYLOSING SPONDYLITIS
     Dates: start: 20000920, end: 20040315
  2. REMICADE [Suspect]
     Indication: ANKYLOSING SPONDYLITIS
     Dosage: IV
     Route: 042
     Dates: start: 20000920, end: 20040315

REACTIONS (1)
  - NON-HODGKIN'S LYMPHOMA [None]
